FAERS Safety Report 5912339-9 (Version None)
Quarter: 2008Q4

REPORT INFORMATION
  Report Type: 
  Country: None (occurrence: None)
  Receive Date: 20081008
  Receipt Date: 20080929
  Transmission Date: 20090506
  Serious: Yes (Hospitalization)
  Sender: FDA-Public Use
  Company Number: US-PURDUE-USA_2008_0035174

PATIENT
  Age: 78 Year
  Sex: Male

DRUGS (5)
  1. SENOKOT-S 8.6 MG/50 MG [Suspect]
     Indication: CONSTIPATION
     Dosage: 2 TABLET, NOCTE
     Dates: start: 20080925, end: 20080925
  2. AGGRENOX [Concomitant]
     Indication: PROPHYLAXIS
     Dosage: 1 TABLET, BID
  3. SALSALATE [Concomitant]
     Indication: ARTHRITIS
     Dosage: 1500 MG, BID
  4. BUPROPION HCL ER [Concomitant]
     Dosage: 150 MG, BID
  5. NITROGLYCERIN [Concomitant]
     Indication: CHEST PAIN
     Dosage: UNK, PRN

REACTIONS (3)
  - CHEST PAIN [None]
  - DRUG INEFFECTIVE [None]
  - PAIN [None]
